FAERS Safety Report 4781451-2 (Version None)
Quarter: 2005Q3

REPORT INFORMATION
  Report Type: 
  Country: None (occurrence: None)
  Receive Date: 20050927
  Receipt Date: 20050915
  Transmission Date: 20060218
  Serious: Yes (Hospitalization, Other)
  Sender: FDA-Public Use
  Company Number: 2005088479

PATIENT
  Age: 80 Year
  Sex: Female

DRUGS (2)
  1. BEXTRA [Suspect]
     Indication: ARTHRALGIA
     Dosage: 40 MG (40 MG, 1 IN 1 D), ORAL
     Route: 048
     Dates: start: 20050401, end: 20050401
  2. SYNTHROID [Concomitant]

REACTIONS (11)
  - ABNORMAL BEHAVIOUR [None]
  - DIZZINESS [None]
  - DYSGEUSIA [None]
  - HALLUCINATION [None]
  - HYPOAESTHESIA [None]
  - INSOMNIA [None]
  - MUSCLE SPASMS [None]
  - SLEEP DISORDER [None]
  - THERAPY NON-RESPONDER [None]
  - THROMBOSIS [None]
  - URINARY TRACT INFECTION [None]
